FAERS Safety Report 15854489 (Version 1)
Quarter: 2019Q1

REPORT INFORMATION
  Report Type: Spontaneous
  Country: US (occurrence: US)
  Receive Date: 20190122
  Receipt Date: 20190122
  Transmission Date: 20190417
  Serious: Yes (Other)
  Sender: FDA-Public Use
  Company Number: None

PATIENT
  Age: 64 Year
  Sex: Female
  Weight: 107.1 kg

DRUGS (1)
  1. CLONIDINE 24 HR WEEKLY TRANSDERMAL PATCH [Suspect]
     Active Substance: CLONIDINE
     Indication: HYPERTENSION
     Dates: start: 20181022, end: 20190118

REACTIONS (4)
  - Headache [None]
  - Fatigue [None]
  - Neuropathy peripheral [None]
  - Hypertension [None]

NARRATIVE: CASE EVENT DATE: 20181022
